FAERS Safety Report 5093516-9 (Version None)
Quarter: 2006Q3

REPORT INFORMATION
  Report Type: 
  Country: None (occurrence: None)
  Receive Date: 20060829
  Receipt Date: 20060816
  Transmission Date: 20061208
  Serious: Yes (Hospitalization, Other)
  Sender: FDA-Public Use
  Company Number: 2005086030

PATIENT
  Age: 77 Year
  Sex: Male

DRUGS (4)
  1. CELEBREX [Suspect]
     Indication: BACK PAIN
     Dosage: 200 MG (100 MG,2 IN 1 D), ORAL
     Route: 048
     Dates: end: 20041201
  2. ZYRTEC [Concomitant]
  3. ZOCOR [Concomitant]
  4. PLAVIX [Concomitant]

REACTIONS (12)
  - BRAIN STEM ISCHAEMIA [None]
  - CEREBROVASCULAR ACCIDENT [None]
  - DIPLOPIA [None]
  - HEADACHE [None]
  - IIIRD NERVE PARALYSIS [None]
  - ISCHAEMIA [None]
  - MICROANGIOPATHY [None]
  - MYDRIASIS [None]
  - NEOPLASM MALIGNANT [None]
  - OCULAR VASCULAR DISORDER [None]
  - OPHTHALMOPLEGIA [None]
  - VISION BLURRED [None]
